FAERS Safety Report 5427998-7 (Version None)
Quarter: 2007Q3

REPORT INFORMATION
  Report Type: 
  Country: None (occurrence: None)
  Receive Date: 20070731
  Receipt Date: 20070521
  Transmission Date: 20080115
  Serious: No
  Sender: FDA-Public Use
  Company Number: US200705005537

PATIENT
  Sex: Male

DRUGS (2)
  1. BYETTA [Suspect]
  2. EXENATIDE UNK STRENGTH PEN, DISPOSABLE EVICE (EXENATIDE PEN (UNKNOWN S [Concomitant]

REACTIONS (1)
  - WEIGHT DECREASED [None]
